FAERS Safety Report 5043469-4 (Version None)
Quarter: 2006Q3

REPORT INFORMATION
  Report Type: 
  Country: None (occurrence: None)
  Receive Date: 20060705
  Receipt Date: 20020322
  Transmission Date: 20061208
  Serious: Yes (Life-Threatening, Hospitalization)
  Sender: FDA-Public Use
  Company Number: FR-BOEHRINGER INGELHEIM PHARMACEUTICALS, INC.-2002-FF-00206FF

PATIENT
  Age: 49 Year
  Sex: Male

DRUGS (6)
  1. PERSANTINE [Suspect]
     Indication: SCINTIGRAPHY
     Route: 042
     Dates: start: 20020227
  2. MAXAIR [Concomitant]
     Route: 065
  3. VENTOLIN [Concomitant]
     Route: 065
  4. PROLAIR [Concomitant]
     Route: 065
  5. THERALAIR [Concomitant]
     Route: 065
  6. PRAZEPAM [Concomitant]
     Route: 065

REACTIONS (3)
  - BRONCHOSPASM [None]
  - COMA [None]
  - INFUSION RELATED REACTION [None]
